FAERS Safety Report 23867324 (Version 6)
Quarter: 2024Q4

REPORT INFORMATION
  Report Type: Spontaneous
  Country: US (occurrence: US)
  Receive Date: 20240517
  Receipt Date: 20241126
  Transmission Date: 20250115
  Serious: No
  Sender: PFIZER
  Company Number: US-PFIZER INC-202400108401

PATIENT
  Age: 17 Year
  Sex: Male
  Weight: 47.17 kg

DRUGS (1)
  1. GENOTROPIN [Suspect]
     Active Substance: SOMATROPIN
     Indication: Short stature
     Dosage: 1.8 MG, DAILY
     Dates: start: 202404

REACTIONS (4)
  - Injection site pain [Recovered/Resolved]
  - Poor quality product administered [Unknown]
  - Product physical consistency issue [Unknown]
  - Liquid product physical issue [Unknown]

NARRATIVE: CASE EVENT DATE: 20240513
